FAERS Safety Report 10619511 (Version 1)
Quarter: 2014Q4

REPORT INFORMATION
  Report Type: Spontaneous
  Country: FR (occurrence: FR)
  Receive Date: 20141202
  Receipt Date: 20141202
  Transmission Date: 20150529
  Serious: Yes (Hospitalization)
  Sender: FDA-Public Use
  Company Number: FR-ASTRAZENECA-2014SE91611

PATIENT
  Age: 22485 Day
  Sex: Male

DRUGS (10)
  1. TARGOCID [Suspect]
     Active Substance: TEICOPLANIN
     Indication: BACTERIAL SEPSIS
     Route: 048
     Dates: start: 20140304, end: 20140404
  2. KEPPRA [Concomitant]
     Active Substance: LEVETIRACETAM
  3. VITAMIN B6 [Concomitant]
     Active Substance: PYRIDOXINE HYDROCHLORIDE
  4. INEXIUM [Suspect]
     Active Substance: ESOMEPRAZOLE
     Route: 048
     Dates: start: 20140304, end: 20140417
  5. COLIMYCINE [Suspect]
     Active Substance: COLISTIMETHATE SODIUM
     Indication: BACTERIAL SEPSIS
     Route: 048
     Dates: start: 20140415, end: 20140417
  6. COLIMYCINE [Suspect]
     Active Substance: COLISTIMETHATE SODIUM
     Indication: BACTERIAL SEPSIS
     Route: 048
     Dates: start: 20140304, end: 20140404
  7. COLIMYCINE [Suspect]
     Active Substance: COLISTIMETHATE SODIUM
     Indication: BACTERIAL SEPSIS
     Route: 048
     Dates: start: 20140404, end: 20140415
  8. VITAMIN B1 [Concomitant]
     Active Substance: THIAMINE HYDROCHLORIDE
  9. TARGOCID [Suspect]
     Active Substance: TEICOPLANIN
     Indication: BACTERIAL SEPSIS
     Route: 048
     Dates: start: 20140404, end: 20140414
  10. CALCIPARINE [Concomitant]
     Active Substance: HEPARIN CALCIUM

REACTIONS (3)
  - Nephritis allergic [Recovered/Resolved]
  - Eosinophilia [Recovered/Resolved]
  - Renal failure [Recovered/Resolved]

NARRATIVE: CASE EVENT DATE: 20140331
